FAERS Safety Report 4361109-4 (Version None)
Quarter: 2004Q2

REPORT INFORMATION
  Report Type: 
  Country: None (occurrence: None)
  Receive Date: 20040520
  Receipt Date: 20040413
  Transmission Date: 20050107
  Serious: Yes (Hospitalization)
  Sender: FDA-Public Use
  Company Number: JP-MERCK-0404USA01507

PATIENT
  Age: 53 Year
  Sex: Male

DRUGS (4)
  1. ALLOPURINOL [Suspect]
     Indication: HYPERURICAEMIA
     Route: 048
     Dates: start: 19960101, end: 20030201
  2. ATENOLOL [Concomitant]
     Indication: HYPERTENSION
     Route: 048
     Dates: start: 19961101, end: 20030201
  3. ATENOLOL [Concomitant]
     Route: 048
     Dates: start: 20030326
  4. COZAAR [Suspect]
     Indication: HYPERTENSION
     Route: 048
     Dates: start: 20020501, end: 20030201

REACTIONS (1)
  - IDIOPATHIC THROMBOCYTOPENIC PURPURA [None]
